FAERS Safety Report 6717195-7 (Version None)
Quarter: 2010Q2

REPORT INFORMATION
  Report Type: 
  Country: None (occurrence: None)
  Receive Date: 20100510
  Receipt Date: 20100429
  Transmission Date: 20101027
  Serious: Yes (Disabling)
  Sender: FDA-Public Use
  Company Number: PHHY2010US25818

PATIENT
  Sex: Female

DRUGS (4)
  1. RECLAST [Suspect]
     Indication: OSTEOPOROSIS
     Dosage: 5 YEARLY
     Route: 042
     Dates: start: 20100101
  2. RECLAST [Suspect]
     Indication: OSTEOPENIA
  3. OMEPRAZOLE [Concomitant]
     Dosage: 20 G, QD
     Route: 048
  4. STEROIDS NOS [Concomitant]

REACTIONS (3)
  - ARTHRALGIA [None]
  - INFLUENZA LIKE ILLNESS [None]
  - SERUM SICKNESS [None]
